FAERS Safety Report 18439532 (Version 1)
Quarter: 2020Q4

REPORT INFORMATION
  Report Type: Spontaneous
  Country: US (occurrence: US)
  Receive Date: 20201029
  Receipt Date: 20201029
  Transmission Date: 20210114
  Serious: Yes (Other)
  Sender: FDA-Public Use
  Company Number: US-CIPLA LTD.-2020US07665

PATIENT

DRUGS (12)
  1. TOPIRAMATE. [Suspect]
     Active Substance: TOPIRAMATE
     Indication: COPROLALIA
     Dosage: 225 MILLIGRAM PER DAY
     Route: 065
  2. TETRABENAZINE. [Suspect]
     Active Substance: TETRABENAZINE
     Indication: COPROLALIA
     Dosage: 150 MILLIGRAM PER DAY
     Route: 065
  3. TETRABENAZINE. [Suspect]
     Active Substance: TETRABENAZINE
     Dosage: 64.5 MILLIGRAM PER DAY
     Route: 065
  4. METHYLPHENIDATE. [Suspect]
     Active Substance: METHYLPHENIDATE
     Indication: COPROLALIA
     Dosage: UNK
     Route: 065
  5. BACLOFEN. [Suspect]
     Active Substance: BACLOFEN
     Indication: COPROLALIA
     Dosage: UNK
     Route: 065
  6. CLONIDINE. [Suspect]
     Active Substance: CLONIDINE
     Indication: COPROLALIA
     Dosage: UNK
     Route: 065
  7. BOTULINUM TOXIN [Suspect]
     Active Substance: BOTULINUM TOXIN NOS
     Indication: COPROLALIA
     Dosage: UNK
     Route: 065
  8. FLUPHENAZINE [Suspect]
     Active Substance: FLUPHENAZINE
     Indication: COPROLALIA
     Dosage: 3 MILLIGRAM PER DAY
     Route: 065
  9. ZIPRASIDONE. [Suspect]
     Active Substance: ZIPRASIDONE
     Indication: COPROLALIA
     Dosage: 20 MILLIGRAM, UNK
     Route: 065
  10. TETRABENAZINE. [Suspect]
     Active Substance: TETRABENAZINE
     Dosage: 112.5 MILLIGRAM PER DAY
     Route: 065
  11. GUANFACINE. [Suspect]
     Active Substance: GUANFACINE
     Indication: COPROLALIA
     Dosage: UNK
     Route: 065
  12. METAXALONE. [Suspect]
     Active Substance: METAXALONE
     Indication: COPROLALIA
     Dosage: UNK
     Route: 065

REACTIONS (3)
  - Tic [Recovering/Resolving]
  - Parkinsonism [Recovering/Resolving]
  - Sedation [Unknown]
